FAERS Safety Report 15426987 (Version 1)
Quarter: 2018Q3

REPORT INFORMATION
  Report Type: Spontaneous
  Country: US (occurrence: US)
  Receive Date: 20180925
  Receipt Date: 20180925
  Transmission Date: 20181010
  Serious: No
  Sender: FDA-Public Use
  Company Number: US-INDIVIOR LIMITED-INDV-108985-2018

PATIENT
  Age: 47 Year
  Sex: Male

DRUGS (2)
  1. PROZAC [Concomitant]
     Active Substance: FLUOXETINE HYDROCHLORIDE
     Indication: DEPRESSION
     Dosage: UNK
     Route: 065
  2. SUBOXONE [Suspect]
     Active Substance: BUPRENORPHINE HYDROCHLORIDE\NALOXONE HYDROCHLORIDE
     Indication: DEPRESSION
     Dosage: 2MG PER DAY
     Route: 060
     Dates: start: 2017

REACTIONS (3)
  - Drug ineffective for unapproved indication [Unknown]
  - Pre-existing condition improved [None]
  - Off label use [Unknown]

NARRATIVE: CASE EVENT DATE: 2017
